FAERS Safety Report 15631066 (Version 1)
Quarter: 2018Q4

REPORT INFORMATION
  Report Type: Spontaneous
  Country: LY (occurrence: LY)
  Receive Date: 20181119
  Receipt Date: 20181119
  Transmission Date: 20190205
  Serious: Yes (Other)
  Sender: FDA-Public Use
  Company Number: LY-BIOVITRUM-2018LY1413

PATIENT
  Sex: Male

DRUGS (2)
  1. ORFADIN [Suspect]
     Active Substance: NITISINONE
  2. ORFADIN [Suspect]
     Active Substance: NITISINONE
     Indication: TYROSINAEMIA
     Dates: start: 200307

REACTIONS (1)
  - Intellectual disability [Unknown]
